FAERS Safety Report 21819336 (Version 1)
Quarter: 2023Q1

REPORT INFORMATION
  Report Type: Spontaneous
  Country: US (occurrence: US)
  Receive Date: 20230104
  Receipt Date: 20230104
  Transmission Date: 20230418
  Serious: No
  Sender: FDA-Public Use
  Company Number: US-SK LIFE SCIENCE, INC-SKPVG-2022-000741

PATIENT

DRUGS (4)
  1. XCOPRI [Suspect]
     Active Substance: CENOBAMATE
     Indication: Epilepsy
     Dosage: 12.5 MILLIGRAM, QD
     Route: 048
     Dates: start: 20220926, end: 20220929
  2. LAMOTRIGINE [Suspect]
     Active Substance: LAMOTRIGINE
     Indication: Seizure
     Dosage: 400 MILLIGRAM
     Route: 065
  3. LAMOTRIGINE [Suspect]
     Active Substance: LAMOTRIGINE
     Dosage: UNK, QID
     Route: 065
  4. CETIRIZINE HYDROCHLORIDE [Suspect]
     Active Substance: CETIRIZINE HYDROCHLORIDE
     Indication: Pruritus
     Dosage: UNK UNK, QD
     Route: 065

REACTIONS (15)
  - Swelling [Recovered/Resolved]
  - Paraesthesia [Recovered/Resolved]
  - Anxiety [Unknown]
  - Drug interaction [Not Recovered/Not Resolved]
  - Feeling abnormal [Unknown]
  - Crying [Unknown]
  - Patient elopement [Unknown]
  - Aura [Unknown]
  - Contusion [Unknown]
  - Hypersensitivity [Unknown]
  - Rash [Unknown]
  - Pain [Not Recovered/Not Resolved]
  - Tooth fracture [Unknown]
  - Pruritus [Recovered/Resolved]
  - Tremor [Unknown]

NARRATIVE: CASE EVENT DATE: 20220926
